FAERS Safety Report 5103746-5 (Version None)
Quarter: 2006Q3

REPORT INFORMATION
  Report Type: 
  Country: None (occurrence: None)
  Receive Date: 20060913
  Receipt Date: 20060503
  Transmission Date: 20061208
  Serious: Yes (Other)
  Sender: FDA-Public Use
  Company Number: PHNU2006DE01833

PATIENT
  Sex: Female

DRUGS (6)
  1. LOCOL [Suspect]
     Dates: start: 20050101
  2. BACLOFEN [Concomitant]
  3. MAPROTILINE [Concomitant]
  4. RAMIPRIL [Concomitant]
  5. ATENOLOL [Concomitant]
  6. LOCOL [Suspect]
     Indication: HYPERCHOLESTEROLAEMIA
     Dosage: 1 DF, QD
     Route: 048

REACTIONS (5)
  - DIAPHRAGMATIC PARALYSIS [None]
  - DYSPNOEA [None]
  - HYPOAESTHESIA [None]
  - POOR PERIPHERAL CIRCULATION [None]
  - SENSORY DISTURBANCE [None]
